FAERS Safety Report 7576977-2 (Version None)
Quarter: 2011Q2

REPORT INFORMATION
  Report Type: 
  Country: None (occurrence: None)
  Receive Date: 20110624
  Receipt Date: 20110624
  Transmission Date: 20111010
  Serious: Yes (Disabling)
  Sender: FDA-Public Use
  Company Number: None

PATIENT
  Sex: Female
  Weight: 61.2356 kg

DRUGS (1)
  1. MUCINEX [Suspect]
     Indication: INCREASED UPPER AIRWAY SECRETION
     Dosage: 600 MG 2X/DAY PO
     Route: 048
     Dates: start: 20110607, end: 20110623

REACTIONS (5)
  - EYE IRRITATION [None]
  - LACRIMATION INCREASED [None]
  - CORNEAL DISORDER [None]
  - PAIN [None]
  - DRY EYE [None]
